FAERS Safety Report 9641251 (Version 2)
Quarter: 2013Q4

REPORT INFORMATION
  Report Type: Spontaneous
  Country: DE (occurrence: DE)
  Receive Date: 20131023
  Receipt Date: 20131211
  Transmission Date: 20140711
  Serious: Yes (Other)
  Sender: FDA-Public Use
  Company Number: DE-UCBSA-100399

PATIENT
  Age: 57 Year
  Sex: Female
  Weight: 81 kg

DRUGS (4)
  1. CIMZIA [Suspect]
     Indication: RHEUMATOID ARTHRITIS
     Route: 058
     Dates: start: 201206
  2. MTX [Concomitant]
     Indication: RHEUMATOID ARTHRITIS
     Dosage: STRENGTH: 20 MG, ROUTE:IC
     Dates: start: 201201
  3. DECORTIN H [Concomitant]
     Indication: RHEUMATOID ARTHRITIS
     Dosage: 5-UNKNOWN MG
     Route: 048
     Dates: start: 201208
  4. FOLSAN [Concomitant]
     Route: 048
     Dates: start: 201201

REACTIONS (1)
  - Psoriasis [Not Recovered/Not Resolved]
